FAERS Safety Report 14173454 (Version 1)
Quarter: 2017Q4

REPORT INFORMATION
  Report Type: Spontaneous
  Country: US (occurrence: US)
  Receive Date: 20171109
  Receipt Date: 20171109
  Transmission Date: 20180321
  Serious: No
  Sender: FDA-Public Use
  Company Number: US-BAYER-2017-213561

PATIENT
  Age: 85 Year
  Sex: Male
  Weight: 70.98 kg

DRUGS (3)
  1. CLARITIN [Suspect]
     Active Substance: LORATADINE
     Dosage: 1 DF, UNK
     Route: 048
     Dates: start: 20171102
  2. TORSEMIDE. [Concomitant]
     Active Substance: TORSEMIDE
     Dosage: UNK
  3. CRESTOR [Concomitant]
     Active Substance: ROSUVASTATIN CALCIUM
     Dosage: UNK

REACTIONS (4)
  - Labelled drug-disease interaction medication error [None]
  - Poor quality drug administered [Unknown]
  - Product physical consistency issue [None]
  - Product use complaint [None]

NARRATIVE: CASE EVENT DATE: 20171102
